FAERS Safety Report 4268660-6 (Version None)
Quarter: 2004Q1

REPORT INFORMATION
  Report Type: 
  Country: None (occurrence: None)
  Receive Date: 20040108
  Receipt Date: 20031226
  Transmission Date: 20041129
  Serious: Yes (Hospitalization, Other)
  Sender: FDA-Public Use
  Company Number: 2003120967

PATIENT
  Age: 24 Year
  Sex: Male

DRUGS (2)
  1. ZITHROMAX [Suspect]
     Indication: PARATYPHOID FEVER
     Dosage: 500 MG (DAILY), ORAL
     Route: 048
     Dates: start: 20031027, end: 20031102
  2. CEFTRIAXONE [Suspect]
     Indication: PARATYPHOID FEVER
     Dosage: 2 GARM (DAILY), INTRAVENOUS
     Route: 042
     Dates: start: 20031030, end: 20031111

REACTIONS (3)
  - DISEASE RECURRENCE [None]
  - HEPATITIS VIRAL [None]
  - PARATYPHOID FEVER [None]
